FAERS Safety Report 10182919 (Version 1)
Quarter: 2014Q2

REPORT INFORMATION
  Report Type: Spontaneous
  Country: CN (occurrence: CN)
  Receive Date: 20140520
  Receipt Date: 20140520
  Transmission Date: 20141212
  Serious: Yes (Hospitalization, Other)
  Sender: FDA-Public Use
  Company Number: CN-ASTRAZENECA-2014SE33358

PATIENT
  Age: 33460 Day
  Sex: Male

DRUGS (1)
  1. ESOMEPRAZOLE SODIUM [Suspect]
     Indication: UPPER GASTROINTESTINAL HAEMORRHAGE
     Route: 042
     Dates: start: 20130221, end: 20130223

REACTIONS (7)
  - Psychotic disorder [Recovering/Resolving]
  - Speech disorder [Recovering/Resolving]
  - Illusion [Recovering/Resolving]
  - Cerebral infarction [Recovering/Resolving]
  - Insomnia [Recovering/Resolving]
  - Photophobia [Recovering/Resolving]
  - Hypoacusis [Recovering/Resolving]
